FAERS Safety Report 4667678-9 (Version None)
Quarter: 2005Q2

REPORT INFORMATION
  Report Type: 
  Country: None (occurrence: None)
  Receive Date: 20050520
  Receipt Date: 20050509
  Transmission Date: 20051028
  Serious: Yes (Other)
  Sender: FDA-Public Use
  Company Number: US-GLAXOSMITHKLINE-A0557663A

PATIENT
  Age: 68 Year
  Sex: Female

DRUGS (1)
  1. CUTIVATE [Suspect]
     Indication: DRY SKIN
     Route: 061
     Dates: start: 20050502, end: 20050507

REACTIONS (3)
  - OEDEMA PERIPHERAL [None]
  - PAIN IN EXTREMITY [None]
  - SEPSIS [None]
